FAERS Safety Report 4593525-X (Version None)
Quarter: 2005Q1

REPORT INFORMATION
  Report Type: 
  Country: None (occurrence: None)
  Receive Date: 20050224
  Receipt Date: 20040811
  Transmission Date: 20050727
  Serious: No
  Sender: FDA-Public Use
  Company Number: US-BRISTOL-MYERS SQUIBB COMPANY-12676532

PATIENT
  Age: 68 Year
  Sex: Male
  Weight: 89 kg

DRUGS (2)
  1. EXCEDRIN (MIGRAINE) [Suspect]
     Indication: BACK PAIN
     Route: 048
  2. ASPIRIN [Concomitant]
     Indication: PROPHYLAXIS

REACTIONS (1)
  - TINNITUS [None]
